FAERS Safety Report 6877320-4 (Version None)
Quarter: 2010Q3

REPORT INFORMATION
  Report Type: 
  Country: None (occurrence: None)
  Receive Date: 20100727
  Receipt Date: 20090826
  Transmission Date: 20110219
  Serious: No
  Sender: FDA-Public Use
  Company Number: US-ABBOTT-09P-163-0594553-00

PATIENT
  Sex: Female
  Weight: 90.8 kg

DRUGS (3)
  1. SYNTHROID [Suspect]
     Indication: HYPOTHYROIDISM
     Route: 048
     Dates: start: 20090401, end: 20090825
  2. SYNTHROID [Suspect]
     Route: 048
     Dates: start: 20090826
  3. LISINOPRIL [Concomitant]
     Indication: PRODUCT USED FOR UNKNOWN INDICATION
     Dosage: UNKNOWN
     Route: 048

REACTIONS (5)
  - DIZZINESS [None]
  - GLOSSODYNIA [None]
  - NAUSEA [None]
  - PAIN IN EXTREMITY [None]
  - THYROID FUNCTION TEST ABNORMAL [None]
